FAERS Safety Report 5304130-1 (Version None)
Quarter: 2007Q2

REPORT INFORMATION
  Report Type: 
  Country: None (occurrence: None)
  Receive Date: 20070423
  Receipt Date: 20070411
  Transmission Date: 20071010
  Serious: Yes (Other)
  Sender: FDA-Public Use
  Company Number: PHBS2007US06556

PATIENT
  Age: 36 Year
  Sex: Male

DRUGS (5)
  1. RISPERDAL [Concomitant]
     Dosage: 2 MG/D
     Route: 065
  2. METOPROLOL SUCCINATE [Suspect]
     Route: 065
  3. SERTRALINE [Concomitant]
  4. NIFEDIPINE [Concomitant]
  5. CLOZAPINE [Suspect]
     Indication: SCHIZOPHRENIA
     Dosage: 550 MG/D
     Route: 065

REACTIONS (7)
  - BLOOD BICARBONATE DECREASED [None]
  - BLOOD GLUCOSE INCREASED [None]
  - BLOOD KETONE BODY INCREASED [None]
  - DIABETES MELLITUS [None]
  - DIABETIC KETOACIDOSIS [None]
  - GLYCOSYLATED HAEMOGLOBIN INCREASED [None]
  - URINE KETONE BODY PRESENT [None]
